FAERS Safety Report 7572969-8 (Version None)
Quarter: 2011Q2

REPORT INFORMATION
  Report Type: 
  Country: None (occurrence: None)
  Receive Date: 20110525
  Receipt Date: 20110207
  Transmission Date: 20111010
  Serious: Yes (Other)
  Sender: FDA-Public Use
  Company Number: 322997

PATIENT
  Age: 62 Year
  Sex: Female
  Weight: 90.7 kg

DRUGS (4)
  1. CITALOPRAM HYDROBROMIDE [Concomitant]
  2. LOSARTAN + HIDROCLOROTIAZIDA (HYDROCHLOROTHIAZIDE, LOSARTAN) [Concomitant]
  3. VICTOZA [Suspect]
     Indication: TYPE 2 DIABETES MELLITUS
     Dosage: 0.6 MG, QD, SUBCUTANEOUS
     Route: 058
     Dates: start: 20100913, end: 20110204
  4. POTASSIUM (POTASSIUM) [Concomitant]

REACTIONS (1)
  - PANCREATITIS ACUTE [None]
